FAERS Safety Report 16171794 (Version 1)
Quarter: 2019Q2

REPORT INFORMATION
  Report Type: Spontaneous
  Country: None (occurrence: CO)
  Receive Date: 20190408
  Receipt Date: 20190408
  Transmission Date: 20190711
  Serious: Yes (Other)
  Sender: FDA-Public Use
  Company Number: CO-POPULATION COUNCIL, INC.-2065501

PATIENT
  Sex: Female

DRUGS (1)
  1. JADELLE [Suspect]
     Active Substance: LEVONORGESTREL
     Route: 059

REACTIONS (2)
  - Complication of device removal [None]
  - Device breakage [Not Recovered/Not Resolved]
